FAERS Safety Report 14836650 (Version 2)
Quarter: 2019Q1

REPORT INFORMATION
  Report Type: Spontaneous
  Country: DE (occurrence: DE)
  Receive Date: 20180502
  Receipt Date: 20190320
  Transmission Date: 20190417
  Serious: Yes (Hospitalization)
  Sender: FDA-Public Use
  Company Number: DE-ROCHE-2113519

PATIENT
  Age: 84 Year
  Sex: Female
  Weight: 63 kg

DRUGS (14)
  1. STALEVO (GERMANY) [Concomitant]
     Dosage: 100|25|200 MG, 1-1-1-0?100MG/25MG/200MG
     Route: 065
  2. PANTOPRAZOL [Concomitant]
     Active Substance: PANTOPRAZOLE SODIUM
     Dosage: 40 MG, 0-0-1-0
     Route: 065
  3. LEVOTHYROXINE SODIUM. [Concomitant]
     Active Substance: LEVOTHYROXINE SODIUM
     Route: 065
  4. BONVIVA [Suspect]
     Active Substance: IBANDRONATE SODIUM
     Indication: PRODUCT USED FOR UNKNOWN INDICATION
     Dosage: 150 MG,
     Route: 065
  5. METFORMIN [Concomitant]
     Active Substance: METFORMIN HYDROCHLORIDE
     Dosage: 500 MG, 1-0-1-0
     Route: 065
  6. CARBIDOPA/LEVODOPA [Concomitant]
     Active Substance: CARBIDOPA\LEVODOPA
     Dosage: 200|50 MG, 0-0-0-1
     Route: 065
  7. MIRTAZAPIN [Concomitant]
     Active Substance: MIRTAZAPINE
     Dosage: 15 MG, 0-0-0-1
     Route: 065
  8. AZILECT [Concomitant]
     Active Substance: RASAGILINE MESYLATE
     Dosage: 1 MG, 1-0-0-0
     Route: 065
  9. NORSPAN (GERMANY) [Concomitant]
  10. PRAMIPEXOL [Concomitant]
     Active Substance: PRAMIPEXOLE
     Dosage: 0.52 MG, 2-0-0-0
     Route: 065
  11. NICERIUM [Concomitant]
     Dosage: 30 MG, 0-1-0-0
     Route: 065
  12. MELPERON [Concomitant]
     Active Substance: MELPERONE
     Dosage: 50 MG, 0-0-0-1
     Route: 065
  13. MCP [Concomitant]
     Active Substance: METOCLOPRAMIDE HYDROCHLORIDE
     Dosage: 10 MG, 1-1-1-0
     Route: 065
  14. TORASEMID [Concomitant]
     Active Substance: TORSEMIDE
     Dosage: 10 MG, 1-0-0-0
     Route: 065

REACTIONS (5)
  - Nausea [Unknown]
  - Haematemesis [Unknown]
  - Abdominal pain [Unknown]
  - Gastrooesophageal reflux disease [Unknown]
  - Vomiting [Unknown]
